FAERS Safety Report 9321855 (Version 1)
Quarter: 2013Q2

REPORT INFORMATION
  Report Type: Spontaneous
  Country: US (occurrence: US)
  Receive Date: 20130531
  Receipt Date: 20130531
  Transmission Date: 20140414
  Serious: No
  Sender: FDA-Public Use
  Company Number: US-ABBOTT-13P-163-1061286-00

PATIENT
  Sex: Female

DRUGS (1)
  1. MARINOL [Suspect]
     Indication: NAUSEA
     Dosage: TAKES IT AROUND CHEMOTHERAPY DATES

REACTIONS (1)
  - Euphoric mood [Not Recovered/Not Resolved]
